FAERS Safety Report 18046772 (Version 2)
Quarter: 2020Q3

REPORT INFORMATION
  Report Type: Spontaneous
  Country: US (occurrence: US)
  Receive Date: 20200720
  Receipt Date: 20200721
  Transmission Date: 20201103
  Serious: Yes (Death, Hospitalization, Disabling, Other)
  Sender: FDA-Public Use
  Company Number: US-009507513-2007USA007413

PATIENT
  Age: 49 Year
  Sex: Female
  Weight: 90.7 kg

DRUGS (2)
  1. LENVATINIB MESYLATE [Suspect]
     Active Substance: LENVATINIB MESYLATE
     Indication: BLOOD CREATINE DECREASED
     Dosage: 14 MILLIGRAM
     Route: 048
     Dates: start: 20200330, end: 20200505
  2. KEYTRUDA [Suspect]
     Active Substance: PEMBROLIZUMAB
     Indication: ENDOMETRIAL CANCER
     Dosage: 200 MILLIGRAM
     Route: 042
     Dates: start: 20200306, end: 20200518

REACTIONS (14)
  - Generalised oedema [Recovering/Resolving]
  - Malignant neoplasm progression [Unknown]
  - Hyponatraemia [Recovering/Resolving]
  - Product use in unapproved indication [Unknown]
  - Central venous catheterisation [Unknown]
  - Hyperkalaemia [Fatal]
  - Acute kidney injury [Fatal]
  - Pulmonary vascular disorder [Unknown]
  - Cardiomegaly [Unknown]
  - Hyponatraemia [Recovering/Resolving]
  - Acute respiratory failure [Fatal]
  - Nephrotic syndrome [Recovering/Resolving]
  - Acute kidney injury [Recovering/Resolving]
  - Blood creatinine increased [Recovering/Resolving]

NARRATIVE: CASE EVENT DATE: 2020
